FAERS Safety Report 14593700 (Version 1)
Quarter: 2018Q1

REPORT INFORMATION
  Report Type: Spontaneous
  Country: IT (occurrence: IT)
  Receive Date: 20180302
  Receipt Date: 20180302
  Transmission Date: 20180509
  Serious: Yes (Other)
  Sender: FDA-Public Use
  Company Number: IT-PFIZER INC-2018084108

PATIENT
  Age: 87 Year
  Sex: Female

DRUGS (4)
  1. FOLINA /00024201/ [Concomitant]
     Active Substance: FOLIC ACID
     Dosage: UNK
  2. LORAZEPAM. [Suspect]
     Active Substance: LORAZEPAM
     Indication: ANXIETY
     Dosage: UNK
     Route: 048
     Dates: start: 20180119, end: 20180119
  3. LEVOBREN [Concomitant]
     Active Substance: LEVOSULPIRIDE
     Dosage: UNK
  4. TAPAZOLE [Concomitant]
     Active Substance: METHIMAZOLE
     Dosage: UNK

REACTIONS (3)
  - Disorganised speech [Recovering/Resolving]
  - Drug abuse [Unknown]
  - Overdose [Recovering/Resolving]

NARRATIVE: CASE EVENT DATE: 20180119
